FAERS Safety Report 5253810-5 (Version None)
Quarter: 2007Q1

REPORT INFORMATION
  Report Type: 
  Country: None (occurrence: None)
  Receive Date: 20070301
  Receipt Date: 20070223
  Transmission Date: 20070707
  Serious: Yes (Hospitalization, Other)
  Sender: FDA-Public Use
  Company Number: GR-ABBOTT-07P-066-0360226-00

PATIENT
  Sex: Male

DRUGS (5)
  1. NORVIR [Suspect]
     Indication: HIV INFECTION
     Route: 048
     Dates: start: 20060101, end: 20070101
  2. APTIVUS [Suspect]
     Indication: HIV INFECTION
     Route: 048
     Dates: start: 20060101, end: 20070101
  3. TRUVADA [Concomitant]
     Indication: HIV INFECTION
     Dosage: 200/245 MG
     Route: 048
  4. FUZEON [Concomitant]
     Indication: HIV INFECTION
     Dosage: 90 MG/ML
     Route: 058
  5. ATOVAQUONE [Concomitant]
     Indication: ANTIFUNGAL PROPHYLAXIS
     Dosage: 750MG/5 ML
     Route: 048

REACTIONS (2)
  - HAEMORRHAGE INTRACRANIAL [None]
  - MENINGITIS CRYPTOCOCCAL [None]
